FAERS Safety Report 14444638 (Version 2)
Quarter: 2018Q1

REPORT INFORMATION
  Report Type: Spontaneous
  Country: IL (occurrence: IL)
  Receive Date: 20180126
  Receipt Date: 20180201
  Transmission Date: 20180509
  Serious: Yes (Hospitalization)
  Sender: FDA-Public Use
  Company Number: IL-FERRINGPH-2018FE00290

PATIENT

DRUGS (2)
  1. ZOMACTON [Suspect]
     Active Substance: SOMATROPIN
     Indication: GROWTH HORMONE DEFICIENCY
     Dosage: 1.4 MG, DAILY
     Route: 058
     Dates: start: 20180122
  2. ZOMACTON [Suspect]
     Active Substance: SOMATROPIN
     Dosage: 1.4 MG, DAILY
     Route: 058
     Dates: start: 2008, end: 2016

REACTIONS (2)
  - Tympanic membrane perforation [Recovered/Resolved]
  - Osteochondroma [Recovered/Resolved]

NARRATIVE: CASE EVENT DATE: 2016
